FAERS Safety Report 4686502-1 (Version None)
Quarter: 2005Q2

REPORT INFORMATION
  Report Type: 
  Country: None (occurrence: None)
  Receive Date: 20050606
  Receipt Date: 20050525
  Transmission Date: 20051028
  Serious: Yes (Hospitalization)
  Sender: FDA-Public Use
  Company Number: 214786

PATIENT
  Age: 55 Year
  Sex: Male

DRUGS (3)
  1. AVASTIN [Suspect]
     Indication: HEPATIC NEOPLASM MALIGNANT
     Dosage: 5 MG/KG, Q3W, INTRAVENOUS
     Route: 042
     Dates: start: 20050331
  2. OXALIPLATIN (OXALIPLATIN) [Concomitant]
  3. CAPECITABINE (CAPECITABINE) [Concomitant]

REACTIONS (4)
  - FUNGAL INFECTION [None]
  - HYPOTENSION [None]
  - OESOPHAGEAL INFECTION [None]
  - VARICES OESOPHAGEAL [None]
